FAERS Safety Report 9531099 (Version 2)
Quarter: 2013Q3

REPORT INFORMATION
  Report Type: Spontaneous
  Country: IT (occurrence: IT)
  Receive Date: 20130918
  Receipt Date: 20130918
  Transmission Date: 20140515
  Serious: Yes (Life-Threatening)
  Sender: FDA-Public Use
  Company Number: IT-TEVA-418196ISR

PATIENT
  Age: 64 Year
  Sex: Female
  Weight: 64 kg

DRUGS (9)
  1. MIRTAZAPINE [Suspect]
     Route: 048
     Dates: start: 20130613, end: 20130613
  2. ENALAPRIL [Suspect]
     Dosage: 70 DOSAGE FORMS DAILY;
     Route: 048
     Dates: start: 20130613, end: 20130613
  3. EFEXOR [Suspect]
     Dosage: 47 DOSAGE FORMS DAILY;
     Route: 048
     Dates: start: 20130613, end: 20130613
  4. EFEXOR [Suspect]
     Dosage: 14 DOSAGE FORMS DAILY;
     Route: 048
     Dates: start: 20130613, end: 20130613
  5. TOPAMAX [Suspect]
     Dosage: 60 DOSAGE FORMS DAILY;
     Route: 048
     Dates: start: 20130613, end: 20130613
  6. SEROQUEL 50MG [Suspect]
     Dosage: 60 DOSAGE FORMS DAILY;
  7. ANSIOLIN 5MG [Suspect]
     Dosage: 20 DOSAGE FORMS DAILY;
     Route: 048
     Dates: start: 20130613, end: 20130613
  8. NOZINAN 100MG [Suspect]
     Dosage: 10 DOSAGE FORMS DAILY;
     Route: 048
     Dates: start: 20130613, end: 20130613
  9. ELONTRIL 150MG [Suspect]
     Dosage: 30 DOSAGE FORMS DAILY;
     Route: 048
     Dates: start: 20130613, end: 20130613

REACTIONS (3)
  - Coma [Recovered/Resolved]
  - Hepatic enzyme increased [Recovered/Resolved]
  - Drug abuse [Recovered/Resolved]
